FAERS Safety Report 7367981-8 (Version None)
Quarter: 2011Q1

REPORT INFORMATION
  Report Type: 
  Country: None (occurrence: None)
  Receive Date: 20110322
  Receipt Date: 20110315
  Transmission Date: 20110831
  Serious: Yes (Other)
  Sender: FDA-Public Use
  Company Number: CHPA2011US04066

PATIENT
  Age: 83 Year
  Sex: Female
  Weight: 54.422 kg

DRUGS (2)
  1. LISINOPRIL [Concomitant]
     Indication: HYPERTENSION
     Dosage: 1 DF, QD
     Route: 048
  2. GAS-X ULTRA STRENGTH [Suspect]
     Dosage: 360 MG, QD
     Route: 048
     Dates: start: 20110312, end: 20110313

REACTIONS (2)
  - HYPERTENSION [None]
  - MALAISE [None]
